FAERS Safety Report 9095083 (Version 1)
Quarter: 2013Q1

REPORT INFORMATION
  Report Type: Spontaneous
  Country: US (occurrence: None)
  Receive Date: 20130123
  Receipt Date: 20130123
  Transmission Date: 20140127
  Serious: Yes (Death)
  Sender: FDA-Public Use
  Company Number: 2013-00475

PATIENT
  Age: 40 Year
  Sex: Male
  Weight: 65 kg

DRUGS (1)
  1. GABAPENTIN? [Suspect]
     Indication: PRODUCT USED FOR UNKNOWN INDICATION
     Route: 048
     Dates: end: 2011

REACTIONS (8)
  - Unresponsive to stimuli [None]
  - Blood glucose increased [None]
  - Electrocardiogram QRS complex prolonged [None]
  - Electrocardiogram QT prolonged [None]
  - Convulsion [None]
  - Agitation [None]
  - Myoclonus [None]
  - Cardio-respiratory arrest [None]
